FAERS Safety Report 9251979 (Version 1)
Quarter: 2013Q1

REPORT INFORMATION
  Report Type: Spontaneous
  Country: US (occurrence: None)
  Receive Date: 20130305
  Receipt Date: 20130305
  Transmission Date: 20140127
  Serious: Yes (Other)
  Sender: FDA-Public Use
  Company Number: 163-21880-12083458

PATIENT
  Age: 83 Year
  Sex: Male

DRUGS (4)
  1. REVLIMID [Suspect]
     Indication: MYELODYSPLASTIC SYNDROME
     Route: 048
     Dates: start: 20120710, end: 2012
  2. AZITHROMYCIN(AZITHROMYCIN) (UNKNOWN) [Concomitant]
  3. FERROUS SULFATE(FERROUS SULFATE) (UNKNOWN) [Concomitant]
  4. OMEPRAZOLE(OMEPRAZOLE) (UNKNOWN) [Concomitant]

REACTIONS (1)
  - Rash [None]
